FAERS Safety Report 23112164 (Version 4)
Quarter: 2024Q1

REPORT INFORMATION
  Report Type: Spontaneous
  Country: JP (occurrence: JP)
  Receive Date: 20231026
  Receipt Date: 20240228
  Transmission Date: 20240410
  Serious: Yes (Other)
  Sender: FDA-Public Use
  Company Number: JP-TAKEDA-2023TJP014113

PATIENT
  Age: 49 Year
  Sex: Male

DRUGS (6)
  1. ALUNBRIG [Suspect]
     Active Substance: BRIGATINIB
     Indication: Non-small cell lung cancer
     Dosage: 90 MILLIGRAM
     Route: 048
     Dates: start: 20221118, end: 20221125
  2. ALUNBRIG [Suspect]
     Active Substance: BRIGATINIB
     Dosage: 180 MILLIGRAM, QD
     Route: 048
     Dates: start: 20221126, end: 20221212
  3. ALUNBRIG [Suspect]
     Active Substance: BRIGATINIB
     Dosage: 90 MILLIGRAM
     Route: 048
     Dates: start: 20221228
  4. ALUNBRIG [Suspect]
     Active Substance: BRIGATINIB
     Dosage: 120 MILLIGRAM
     Route: 048
  5. ALUNBRIG [Suspect]
     Active Substance: BRIGATINIB
     Dosage: 150 MILLIGRAM
     Route: 048
     Dates: end: 20230430
  6. ALUNBRIG [Suspect]
     Active Substance: BRIGATINIB
     Dosage: 180 MILLIGRAM
     Route: 048
     Dates: start: 20230501

REACTIONS (7)
  - Metastases to central nervous system [Unknown]
  - Hypertension [Recovering/Resolving]
  - Liver disorder [Recovered/Resolved]
  - Metastases to central nervous system [Recovering/Resolving]
  - Non-small cell lung cancer [Recovering/Resolving]
  - Blood creatine phosphokinase increased [Recovering/Resolving]
  - Amylase increased [Recovering/Resolving]

NARRATIVE: CASE EVENT DATE: 20221206
